FAERS Safety Report 5672533-1 (Version None)
Quarter: 2008Q1

REPORT INFORMATION
  Report Type: 
  Country: None (occurrence: None)
  Receive Date: 20080318
  Receipt Date: 20080318
  Transmission Date: 20080703
  Serious: Yes (Death, Hospitalization)
  Sender: FDA-Public Use
  Company Number: None

PATIENT
  Sex: Female
  Weight: 13 kg

DRUGS (17)
  1. DACTINOMYCIN [Suspect]
     Dosage: .8 MG
  2. IFOSFAMIDE [Suspect]
     Dosage: 3540 MG
  3. VINCRISTINE SULFATE [Suspect]
     Dosage: .8 MG
  4. AMOXICILLIN + CLAVULANATE POTASSIUM [Concomitant]
  5. ANCEF [Concomitant]
  6. CEFEPIME HYDROCHLORIDE [Concomitant]
  7. CODEINE SUL TAB [Concomitant]
  8. DEXAMETHASONE [Concomitant]
  9. DIPHENHYDRAMINE HCL [Concomitant]
  10. HEPARIN [Concomitant]
  11. LORAZEPAM [Concomitant]
  12. NEUPOGEN [Concomitant]
  13. PENTOBARBITOL [Concomitant]
  14. SULFAMETHOXAZOLE AND TRIMETHOPRIM [Concomitant]
  15. VANCOMYCIN [Concomitant]
  16. VERSED [Concomitant]
  17. ZOFRAN [Concomitant]

REACTIONS (11)
  - CEREBELLAR HAEMATOMA [None]
  - COUGH [None]
  - DECREASED APPETITE [None]
  - EPISTAXIS [None]
  - HAEMOGLOBIN DECREASED [None]
  - HEADACHE [None]
  - LOSS OF CONSCIOUSNESS [None]
  - PLATELET COUNT DECREASED [None]
  - POSTURING [None]
  - VOMITING [None]
  - WHITE BLOOD CELL COUNT DECREASED [None]
